FAERS Safety Report 8429185-7 (Version None)
Quarter: 2012Q2

REPORT INFORMATION
  Report Type: 
  Country: None (occurrence: None)
  Receive Date: 20120612
  Receipt Date: 20120604
  Transmission Date: 20120825
  Serious: Yes (Hospitalization, Other)
  Sender: FDA-Public Use
  Company Number: CA-BRISTOL-MYERS SQUIBB COMPANY-16662751

PATIENT
  Age: 34 Year
  Sex: Male

DRUGS (5)
  1. ABILIFY [Suspect]
     Indication: DEPRESSION
     Dosage: TOOK HALF OF A 2MG TABLET FOR TWO DAYS ON 3RD DY TOOK A WHOLE 2MG TABLET
     Route: 048
  2. SYNTHROID [Suspect]
  3. CELEXA [Suspect]
  4. VALPROATE SODIUM [Suspect]
  5. METFORMIN HCL [Suspect]

REACTIONS (4)
  - SOMNOLENCE [None]
  - MUSCLE SPASMS [None]
  - MEDICATION ERROR [None]
  - MYDRIASIS [None]
